FAERS Safety Report 17279441 (Version 1)
Quarter: 2020Q1

REPORT INFORMATION
  Report Type: Spontaneous
  Country: US (occurrence: US)
  Receive Date: 20200116
  Receipt Date: 20200116
  Transmission Date: 20200409
  Serious: Yes (Death, Other)
  Sender: FDA-Public Use
  Company Number: US-PFM-2020-00440

PATIENT
  Age: 40 Year
  Sex: Female

DRUGS (3)
  1. PROPRANOLOL [Suspect]
     Active Substance: PROPRANOLOL HYDROCHLORIDE
     Indication: OFF LABEL USE
  2. PROPRANOLOL [Suspect]
     Active Substance: PROPRANOLOL HYDROCHLORIDE
     Indication: HYPERTHYROIDISM
     Route: 048
  3. METHIMAZOLE. [Suspect]
     Active Substance: METHIMAZOLE
     Indication: HYPERTHYROIDISM
     Route: 048

REACTIONS (13)
  - Gastrointestinal haemorrhage [Fatal]
  - Pneumoperitoneum [Unknown]
  - Traumatic fracture [Fatal]
  - Abdominal distension [Unknown]
  - Off label use [Unknown]
  - Product use in unapproved indication [Unknown]
  - Product administered to patient of inappropriate age [Unknown]
  - Disseminated intravascular coagulation [Fatal]
  - Mental status changes [Unknown]
  - Cardiac failure acute [Unknown]
  - Duodenal perforation [Unknown]
  - Shock [Unknown]
  - Pulseless electrical activity [Recovered/Resolved]
